FAERS Safety Report 6072196-X (Version None)
Quarter: 2009Q1

REPORT INFORMATION
  Report Type: 
  Country: None (occurrence: None)
  Receive Date: 20090206
  Receipt Date: 20090206
  Transmission Date: 20090719
  Serious: Yes (Other)
  Sender: FDA-Public Use
  Company Number: None

PATIENT
  Sex: Male

DRUGS (4)
  1. IBUPROFEN TABLETS [Suspect]
     Dosage: 800MG TABLET 800 MG TID ORAL
     Route: 048
     Dates: start: 20080103, end: 20090206
  2. CYMBALTA [Concomitant]
  3. LIDOCAINE [Concomitant]
  4. OXYCODONE HCL [Concomitant]

REACTIONS (1)
  - GASTROOESOPHAGEAL REFLUX DISEASE [None]
